FAERS Safety Report 6099025-2 (Version None)
Quarter: 2009Q1

REPORT INFORMATION
  Report Type: 
  Country: None (occurrence: None)
  Receive Date: 20090302
  Receipt Date: 20090226
  Transmission Date: 20090719
  Serious: Yes (Other)
  Sender: FDA-Public Use
  Company Number: FR-WYE-G03208909

PATIENT
  Age: 42 Year
  Sex: Male

DRUGS (1)
  1. TORISEL [Suspect]
     Dosage: UNKNOWN
     Route: 042

REACTIONS (1)
  - SPLENIC RUPTURE [None]
